FAERS Safety Report 21956434 (Version 4)
Quarter: 2024Q1

REPORT INFORMATION
  Report Type: Spontaneous
  Country: IT (occurrence: IT)
  Receive Date: 20230206
  Receipt Date: 20240320
  Transmission Date: 20240409
  Serious: Yes (Hospitalization, Other)
  Sender: FDA-Public Use
  Company Number: IT-MYLANLABS-2023M1001382

PATIENT
  Age: 18 Year
  Sex: Male

DRUGS (5)
  1. EPLERENONE [Suspect]
     Active Substance: EPLERENONE
     Indication: Product used for unknown indication
     Dosage: UNK
     Route: 065
  2. BISOPROLOL [Suspect]
     Active Substance: BISOPROLOL\BISOPROLOL FUMARATE
     Indication: Product used for unknown indication
     Dosage: UNK
     Route: 065
  3. ISOTRETINOIN [Suspect]
     Active Substance: ISOTRETINOIN
     Indication: Acne
     Dosage: 40 MILLIGRAM, QD (40MG/DIE)
     Route: 065
     Dates: start: 202103
  4. SACUBITRIL [Concomitant]
     Active Substance: SACUBITRIL
     Indication: Product used for unknown indication
     Dosage: UNK
     Route: 065
  5. VALSARTAN [Concomitant]
     Active Substance: VALSARTAN
     Indication: Product used for unknown indication
     Dosage: UNK
     Route: 065

REACTIONS (11)
  - Dilated cardiomyopathy [Recovering/Resolving]
  - Renal infarct [Unknown]
  - Ventricular tachycardia [Recovering/Resolving]
  - Cardiac failure [Recovering/Resolving]
  - Pleural effusion [Unknown]
  - Ascites [Unknown]
  - Left ventricular dilatation [Unknown]
  - Ejection fraction decreased [Recovering/Resolving]
  - Hepatic enzyme increased [Recovered/Resolved]
  - Renal embolism [Unknown]
  - Drug ineffective [Unknown]
